FAERS Safety Report 25727295 (Version 1)
Quarter: 2025Q3

REPORT INFORMATION
  Report Type: Report from Study
  Country: BR (occurrence: BR)
  Receive Date: 20250826
  Receipt Date: 20250826
  Transmission Date: 20251020
  Serious: Yes (Hospitalization, Other)
  Sender: JOHNSON AND JOHNSON
  Company Number: BR-JNJFOC-20250823965

PATIENT
  Age: 18 Year
  Sex: Male
  Weight: 45 kg

DRUGS (1)
  1. INFLIXIMAB [Suspect]
     Active Substance: INFLIXIMAB
     Indication: Crohn^s disease
     Route: 041
     Dates: start: 20220101, end: 20240818

REACTIONS (4)
  - Intestinal resection [Unknown]
  - Hospitalisation [Unknown]
  - Drug ineffective [Unknown]
  - Colostomy bag user [Unknown]
